FAERS Safety Report 22146340 (Version 1)
Quarter: 2023Q1

REPORT INFORMATION
  Report Type: Spontaneous
  Country: JP (occurrence: JP)
  Receive Date: 20230328
  Receipt Date: 20230328
  Transmission Date: 20230418
  Serious: Yes (Other)
  Sender: FDA-Public Use
  Company Number: JP-TAKEDA-2023TJP001285

PATIENT
  Age: 71 Year
  Sex: Male
  Weight: 61.3 kg

DRUGS (9)
  1. VECTIBIX [Suspect]
     Active Substance: PANITUMUMAB
     Indication: Colon cancer
     Dosage: UNK UNK, Q2WK
     Route: 041
     Dates: start: 202112
  2. VECTIBIX [Suspect]
     Active Substance: PANITUMUMAB
     Dosage: UNK UNK, Q2WK
     Route: 041
     Dates: start: 202201
  3. VECTIBIX [Suspect]
     Active Substance: PANITUMUMAB
     Dosage: UNK
     Route: 042
     Dates: start: 20230216
  4. IRINOTECAN [Suspect]
     Active Substance: IRINOTECAN
     Indication: Colon cancer
     Dosage: UNK
     Route: 065
     Dates: start: 20211208
  5. IRINOTECAN [Suspect]
     Active Substance: IRINOTECAN
     Dosage: UNK
     Route: 065
     Dates: start: 20220127
  6. IRINOTECAN [Suspect]
     Active Substance: IRINOTECAN
     Dosage: UNK
     Route: 065
     Dates: start: 20220804
  7. FLUOROURACIL [Suspect]
     Active Substance: FLUOROURACIL
     Indication: Colon cancer
     Dosage: UNK
     Route: 065
     Dates: start: 20211208
  8. FLUOROURACIL [Suspect]
     Active Substance: FLUOROURACIL
     Dosage: UNK
     Route: 065
     Dates: start: 20220804
  9. LEVOLEUCOVORIN CALCIUM [Suspect]
     Active Substance: LEVOLEUCOVORIN CALCIUM
     Indication: Colon cancer
     Dosage: UNK
     Route: 065
     Dates: start: 20211208

REACTIONS (7)
  - Lacunar infarction [Unknown]
  - Hypomagnesaemia [Recovering/Resolving]
  - White blood cell count decreased [Unknown]
  - Decreased appetite [Recovering/Resolving]
  - Dermatitis acneiform [Recovering/Resolving]
  - Rash [Unknown]
  - Paronychia [Recovering/Resolving]

NARRATIVE: CASE EVENT DATE: 20220101
